FAERS Safety Report 17034600 (Version 2)
Quarter: 2020Q1

REPORT INFORMATION
  Report Type: Spontaneous
  Country: US (occurrence: US)
  Receive Date: 20191115
  Receipt Date: 20200108
  Transmission Date: 20200409
  Serious: No
  Sender: FDA-Public Use
  Company Number: US-ASTRAZENECA-2019SF49643

PATIENT
  Sex: Female

DRUGS (1)
  1. SYMBICORT [Suspect]
     Active Substance: BUDESONIDE\FORMOTEROL FUMARATE DIHYDRATE
     Indication: PNEUMONIA
     Dosage: 160/4.5 MCG , TWO TIMES A DAY
     Route: 055

REACTIONS (8)
  - Fatigue [Unknown]
  - Product dose omission [Unknown]
  - Device issue [Unknown]
  - Product use issue [Unknown]
  - Chest discomfort [Unknown]
  - Dizziness [Unknown]
  - Wrong technique in device usage process [Unknown]
  - Device failure [Unknown]
